FAERS Safety Report 4449573-3 (Version None)
Quarter: 2004Q3

REPORT INFORMATION
  Report Type: 
  Country: None (occurrence: None)
  Receive Date: 20040913
  Receipt Date: 20040903
  Transmission Date: 20050211
  Serious: Yes (Death, Life-Threatening, Hospitalization, Other)
  Sender: FDA-Public Use
  Company Number: 2004-08-1516

PATIENT
  Age: 68 Year
  Sex: Male

DRUGS (4)
  1. CELESTONE SOLUSPAN (BETAMETHASONE SOD PHOSPHATE/ACET INJECTABLE SUSPEN [Suspect]
     Indication: SINUSITIS
     Dosage: INTRAMUSCULAR
     Route: 030
     Dates: start: 20040821
  2. CLINDAMYCIN [Suspect]
     Indication: SINUSITIS
     Dosage: 300 MG
     Dates: start: 20040821
  3. SACCHAROMYCES BOULARDII [Suspect]
  4. RIVOTRIL [Concomitant]

REACTIONS (6)
  - BACK PAIN [None]
  - CORONARY ARTERY DISEASE [None]
  - MYOCARDIAL ISCHAEMIA [None]
  - RESPIRATORY ARREST [None]
  - SYNCOPE [None]
  - VOMITING [None]
